FAERS Safety Report 24200581 (Version 1)
Quarter: 2024Q3

REPORT INFORMATION
  Report Type: Spontaneous
  Country: US (occurrence: US)
  Receive Date: 20240812
  Receipt Date: 20240812
  Transmission Date: 20241016
  Serious: No
  Sender: AYTU BIOSCIENCE
  Company Number: US-AYTU BIOPHARMA, INC.-2023AYT000043

PATIENT

DRUGS (3)
  1. COTEMPLA XR-ODT [Suspect]
     Active Substance: METHYLPHENIDATE
     Indication: Attention deficit hyperactivity disorder
     Dosage: 25.9 MILLIGRAM, QD
     Route: 065
  2. COTEMPLA XR-ODT [Suspect]
     Active Substance: METHYLPHENIDATE
     Dosage: 17.3 MILLIGRAM, QD
     Route: 065
  3. TENEX [Concomitant]
     Active Substance: GUANFACINE HYDROCHLORIDE
     Indication: Disruptive mood dysregulation disorder
     Dosage: UNK

REACTIONS (4)
  - Aggression [Recovered/Resolved]
  - Abnormal behaviour [Recovered/Resolved]
  - Therapeutic response shortened [Unknown]
  - Product quality issue [Unknown]
